FAERS Safety Report 10636452 (Version 3)
Quarter: 2015Q1

REPORT INFORMATION
  Report Type: Spontaneous
  Country: US (occurrence: US)
  Receive Date: 20141207
  Receipt Date: 20150210
  Transmission Date: 20150720
  Serious: No
  Sender: FDA-Public Use
  Company Number: US-GLAXOSMITHKLINE-A1078066A

PATIENT

DRUGS (7)
  1. LOSARTAN [Concomitant]
     Active Substance: LOSARTAN
  2. OXYGEN. [Concomitant]
     Active Substance: OXYGEN
  3. FLUVOXAMINE [Concomitant]
     Active Substance: FLUVOXAMINE
  4. ALBUTEROL NEBULISER SOLUTION [Suspect]
     Active Substance: ALBUTEROL SULFATE
     Indication: CHRONIC OBSTRUCTIVE PULMONARY DISEASE
     Route: 055
  5. ATENOLOL. [Concomitant]
     Active Substance: ATENOLOL
  6. VENTOLIN [Suspect]
     Active Substance: ALBUTEROL SULFATE
     Indication: CHRONIC OBSTRUCTIVE PULMONARY DISEASE
     Route: 055
     Dates: start: 201401
  7. BREO ELLIPTA [Suspect]
     Active Substance: FLUTICASONE FUROATE\VILANTEROL TRIFENATATE
     Indication: CHRONIC OBSTRUCTIVE PULMONARY DISEASE
     Dosage: 100/25 MCG
     Route: 055
     Dates: start: 20140616

REACTIONS (5)
  - Treatment noncompliance [Unknown]
  - Cough [Unknown]
  - Drug ineffective [Unknown]
  - Product quality issue [Unknown]
  - Fatigue [Not Recovered/Not Resolved]

NARRATIVE: CASE EVENT DATE: 2014
